FAERS Safety Report 22043786 (Version 3)
Quarter: 2023Q4

REPORT INFORMATION
  Report Type: Spontaneous
  Country: JP (occurrence: JP)
  Receive Date: 20230228
  Receipt Date: 20231020
  Transmission Date: 20240109
  Serious: Yes (Other)
  Sender: FDA-Public Use
  Company Number: JP-ASTELLAS-2023JP002611

PATIENT
  Sex: Male

DRUGS (1)
  1. PADCEV [Suspect]
     Active Substance: ENFORTUMAB VEDOTIN-EJFV
     Indication: Transitional cell carcinoma
     Dosage: UNK UNK, UNKNOWN FREQ.
     Route: 065
     Dates: start: 202302

REACTIONS (3)
  - Internal haemorrhage [Unknown]
  - Malaise [Not Recovered/Not Resolved]
  - Skin reaction [Unknown]

NARRATIVE: CASE EVENT DATE: 20230201
